FAERS Safety Report 5474283-3 (Version None)
Quarter: 2007Q4

REPORT INFORMATION
  Report Type: 
  Country: None (occurrence: None)
  Receive Date: 20071002
  Receipt Date: 20070710
  Transmission Date: 20080405
  Serious: No
  Sender: FDA-Public Use
  Company Number: US-ASTRAZENECA-2007UW16155

PATIENT
  Age: 69 Year
  Sex: Female

DRUGS (6)
  1. ARIMIDEX [Suspect]
     Indication: BREAST CANCER FEMALE
     Route: 048
     Dates: start: 20060901
  2. LISINOPRIL [Concomitant]
  3. LASIX [Concomitant]
  4. OMEPRAZOLE [Concomitant]
     Route: 048
  5. OXYBUTYN [Concomitant]
  6. LEVOTHYROXINE SODIUM [Concomitant]

REACTIONS (2)
  - ILL-DEFINED DISORDER [None]
  - SOMNOLENCE [None]
